FAERS Safety Report 15806973 (Version 1)
Quarter: 2019Q1

REPORT INFORMATION
  Report Type: Spontaneous
  Country: US (occurrence: US)
  Receive Date: 20190102
  Receipt Date: 20190102
  Transmission Date: 20190417
  Serious: No
  Sender: FDA-Public Use
  Company Number: None

PATIENT

DRUGS (2)
  1. ACTEAMINOPHEN ER TAB 650MG [Suspect]
     Active Substance: ACETAMINOPHEN
  2. ACTEAMINOPHEN 500MG [Suspect]
     Active Substance: ACETAMINOPHEN

REACTIONS (4)
  - Product dispensing error [None]
  - Incorrect product dosage form administered [None]
  - Transcription medication error [None]
  - Product communication issue [None]
